FAERS Safety Report 21869424 (Version 1)
Quarter: 2023Q1

REPORT INFORMATION
  Report Type: Spontaneous
  Country: DE (occurrence: DE)
  Receive Date: 20230117
  Receipt Date: 20230117
  Transmission Date: 20230418
  Serious: Yes (Other)
  Sender: FDA-Public Use
  Company Number: None

PATIENT
  Age: 60 Year
  Sex: Male

DRUGS (13)
  1. TRAZODONE HYDROCHLORIDE [Suspect]
     Active Substance: TRAZODONE HYDROCHLORIDE
     Indication: Product used for unknown indication
     Dosage: 100 MG P.O.
     Dates: start: 20220817, end: 20220824
  2. ESKETAMINE HYDROCHLORIDE [Concomitant]
     Active Substance: ESKETAMINE HYDROCHLORIDE
     Dosage: 2X 84 MG/ WO.
     Dates: start: 20220831, end: 20220916
  3. FOLIC ACID [Concomitant]
     Active Substance: FOLIC ACID
     Dosage: 5 MG P.O. - B.A.W.
     Dates: start: 20220501
  4. VITAMIN D [Concomitant]
     Active Substance: VITAMIN D NOS
     Dosage: 1000 MG P.O. - B.A.W.
     Dates: start: 20220501
  5. VENLAFAXINE [Concomitant]
     Active Substance: VENLAFAXINE HYDROCHLORIDE
     Dosage: 37,5 MG P.O.
     Dates: start: 20220902, end: 20220904
  6. URSODIOL [Concomitant]
     Active Substance: URSODIOL
     Dosage: 1250 MG P.O. - B.A.W.
     Dates: start: 20220501
  7. VENLAFAXINE [Concomitant]
     Active Substance: VENLAFAXINE HYDROCHLORIDE
     Dosage: 75 MG P.O.
     Dates: start: 20220804, end: 20220810
  8. VENLAFAXINE [Concomitant]
     Active Substance: VENLAFAXINE HYDROCHLORIDE
     Dosage: 75 MG P.O.
     Dates: start: 20220511, end: 20220515
  9. VENLAFAXINE [Concomitant]
     Active Substance: VENLAFAXINE HYDROCHLORIDE
     Dosage: 150 MG P.O. - B.A.W.
     Dates: start: 20220913
  10. VENLAFAXINE [Concomitant]
     Active Substance: VENLAFAXINE HYDROCHLORIDE
     Dosage: 37,5 MG P.O.
     Dates: start: 20220811, end: 20220816
  11. VENLAFAXINE [Concomitant]
     Active Substance: VENLAFAXINE HYDROCHLORIDE
     Dosage: 75 MG P.O
     Dates: start: 20220905, end: 20220912
  12. VENLAFAXINE [Concomitant]
     Active Substance: VENLAFAXINE HYDROCHLORIDE
     Dosage: 150 MG P.O.
     Dates: start: 20220516, end: 20220803
  13. TRAZODONE HYDROCHLORIDE [Suspect]
     Active Substance: TRAZODONE HYDROCHLORIDE
     Indication: Product used for unknown indication
     Dosage: 200 MG P.O.
     Dates: start: 20220825, end: 20220830

REACTIONS (8)
  - Pre-existing disease [Unknown]
  - Chest discomfort [Recovered/Resolved]
  - Paraesthesia ear [Recovered/Resolved]
  - Suicidal ideation [Recovered/Resolved]
  - Tinnitus [Recovered/Resolved]
  - Disorientation [Recovered/Resolved]
  - Dizziness [Recovered/Resolved]
  - Movement disorder [Recovered/Resolved]

NARRATIVE: CASE EVENT DATE: 20220818
